FAERS Safety Report 8613501-7 (Version None)
Quarter: 2012Q3

REPORT INFORMATION
  Report Type: 
  Country: None (occurrence: None)
  Receive Date: 20120823
  Receipt Date: 20120807
  Transmission Date: 20120928
  Serious: Yes (Other)
  Sender: FDA-Public Use
  Company Number: US-009507513-1208USA007763

PATIENT

DRUGS (13)
  1. CYANOCOBALAMIN [Concomitant]
  2. HYDROCHLOROTHIAZIDE [Concomitant]
  3. PYRIDOXINE HYDROCHLORIDE [Concomitant]
  4. CALCIUM POLYCARBOPHIL [Concomitant]
  5. BRINZOLAMIDE [Concomitant]
     Indication: OCULAR HYPERTENSION
     Dosage: UNK
     Dates: start: 20120603, end: 20120726
  6. STUDY DRUG (UNSPECIFIED) [Suspect]
     Indication: OCULAR HYPERTENSION
     Dosage: 1 GTT, QD
     Route: 047
     Dates: start: 20120801, end: 20120806
  7. LACTOBACILLUS ACIDOPHILUS [Concomitant]
  8. SIMVASTATIN [Concomitant]
  9. VITAMINS (UNSPECIFIED) [Concomitant]
  10. FOLIC ACID [Concomitant]
  11. ASPIRIN [Concomitant]
  12. MK-2452 [Suspect]
     Indication: OCULAR HYPERTENSION
     Dosage: 1 GTT, QD
     Route: 047
     Dates: start: 20120801, end: 20120806
  13. LISINOPRIL [Concomitant]

REACTIONS (1)
  - ANTERIOR CHAMBER CELL [None]
